FAERS Safety Report 22124350 (Version 1)
Quarter: 2023Q1

REPORT INFORMATION
  Report Type: Spontaneous
  Country: US (occurrence: US)
  Receive Date: 20230322
  Receipt Date: 20230322
  Transmission Date: 20230417
  Serious: Yes (Other)
  Sender: FDA-Public Use
  Company Number: US-AMNEAL PHARMACEUTICALS-2023-AMRX-00936

PATIENT
  Age: 85 Year
  Sex: Male

DRUGS (1)
  1. ALYMSYS [Suspect]
     Active Substance: BEVACIZUMAB-MALY
     Indication: Product used for unknown indication
     Dosage: UNK

REACTIONS (7)
  - Retinal vascular occlusion [Unknown]
  - Retinal haemorrhage [Unknown]
  - Retinal exudates [Unknown]
  - Retinal vascular disorder [Unknown]
  - Uveitis [Unknown]
  - Antinuclear antibody increased [Unknown]
  - Cardiolipin antibody positive [Unknown]
